FAERS Safety Report 5457994-5 (Version None)
Quarter: 2007Q3

REPORT INFORMATION
  Report Type: 
  Country: None (occurrence: None)
  Receive Date: 20070917
  Receipt Date: 20070911
  Transmission Date: 20080115
  Serious: Yes (Hospitalization)
  Sender: FDA-Public Use
  Company Number: 163-20785-07050719

PATIENT
  Age: 49 Year
  Sex: Male

DRUGS (1)
  1. THALOMID [Suspect]
     Indication: MULTIPLE MYELOMA
     Dosage: 100-200 MG, DAILY, ORAL
     Route: 048
     Dates: start: 20060616

REACTIONS (4)
  - CARDIAC VALVE VEGETATION [None]
  - CHEST PAIN [None]
  - RENAL FAILURE [None]
  - TRICUSPID VALVE DISEASE [None]
